FAERS Safety Report 9869792 (Version 2)
Quarter: 2014Q2

REPORT INFORMATION
  Report Type: Spontaneous
  Country: GB (occurrence: None)
  Receive Date: 20140131
  Receipt Date: 20140424
  Transmission Date: 20141212
  Serious: Yes (Other)
  Sender: FDA-Public Use
  Company Number: AUR-APL-2014-00678

PATIENT
  Age: 45 Year
  Sex: Male
  Weight: 101.6 kg

DRUGS (1)
  1. CIPROFLOXACIN (CIPROFLOXACIN) [Suspect]
     Indication: PROSTATE INFECTION
     Dosage: 500 MG PO BID
     Route: 048
     Dates: start: 20130918, end: 20130925

REACTIONS (3)
  - Phimosis [None]
  - Dysuria [None]
  - Dyspareunia [None]
